FAERS Safety Report 7643025-5 (Version None)
Quarter: 2011Q3

REPORT INFORMATION
  Report Type: 
  Country: None (occurrence: None)
  Receive Date: 20110728
  Receipt Date: 20110722
  Transmission Date: 20111222
  Serious: Yes (Other)
  Sender: FDA-Public Use
  Company Number: CA-ASTRAZENECA-2011SE43514

PATIENT
  Age: 45 Year
  Sex: Female

DRUGS (3)
  1. VIMOVO [Suspect]
     Route: 048
  2. THYROID MEDICATION [Concomitant]
  3. NAPROXEN (ALEVE) [Concomitant]

REACTIONS (1)
  - FEELING ABNORMAL [None]
